FAERS Safety Report 21772180 (Version 1)
Quarter: 2022Q4

REPORT INFORMATION
  Report Type: Spontaneous
  Country: US (occurrence: US)
  Receive Date: 20221223
  Receipt Date: 20221223
  Transmission Date: 20230112
  Serious: No
  Sender: FDA-Public Use
  Company Number: US-CTI BIOPHARMA-2022US03166

PATIENT

DRUGS (16)
  1. VONJO [Suspect]
     Active Substance: PACRITINIB
     Indication: Polycythaemia
     Dosage: 200 MG, BID
     Route: 048
     Dates: start: 20220829, end: 20220926
  2. SERTRALINE [Concomitant]
     Active Substance: SERTRALINE HYDROCHLORIDE
  3. PROBIOTICS NOS [Concomitant]
     Active Substance: PROBIOTICS NOS
  4. OMEGA-3 FATTY ACIDS [Concomitant]
     Active Substance: OMEGA-3 FATTY ACIDS
  5. NALTREXONE [Concomitant]
     Active Substance: NALTREXONE
  6. MYRBETRIQ [Concomitant]
     Active Substance: MIRABEGRON
  7. GABAPENTIN [Concomitant]
     Active Substance: GABAPENTIN
  8. FOSAMAX [Concomitant]
     Active Substance: ALENDRONATE SODIUM
  9. DONEPEZIL [Concomitant]
     Active Substance: DONEPEZIL
  10. DANAZOL [Concomitant]
     Active Substance: DANAZOL
  11. CHOLESTYRAMINE [Concomitant]
     Active Substance: CHOLESTYRAMINE
  12. ASPIRIN [Concomitant]
     Active Substance: ASPIRIN
  13. ALLOPURINOL [Concomitant]
     Active Substance: ALLOPURINOL
  14. TYLENOL [Concomitant]
     Active Substance: ACETAMINOPHEN
  15. IMODIUM AD [Concomitant]
     Active Substance: LOPERAMIDE HYDROCHLORIDE
  16. MINERALS\VITAMINS [Concomitant]
     Active Substance: MINERALS\VITAMINS

REACTIONS (1)
  - Hospice care [Unknown]

NARRATIVE: CASE EVENT DATE: 20220926
